FAERS Safety Report 21333623 (Version 1)
Quarter: 2022Q3

REPORT INFORMATION
  Report Type: Spontaneous
  Country: US (occurrence: US)
  Receive Date: 20220914
  Receipt Date: 20220914
  Transmission Date: 20221027
  Serious: No
  Sender: FDA-Public Use
  Company Number: US-ABBVIE-22K-163-4535008-00

PATIENT
  Sex: Female

DRUGS (1)
  1. HUMIRA [Suspect]
     Active Substance: ADALIMUMAB
     Indication: Product used for unknown indication
     Dosage: DRUG WAS STARTED AT LEAST IN 2012
     Route: 058

REACTIONS (8)
  - Gait disturbance [Unknown]
  - Spinal disorder [Unknown]
  - Back disorder [Unknown]
  - Musculoskeletal disorder [Unknown]
  - Nervous system disorder [Unknown]
  - Joint stiffness [Unknown]
  - Paraesthesia [Unknown]
  - Pain in extremity [Unknown]
